FAERS Safety Report 4505037-X (Version None)
Quarter: 2004Q4

REPORT INFORMATION
  Report Type: 
  Country: None (occurrence: None)
  Receive Date: 20041116
  Receipt Date: 20041102
  Transmission Date: 20050328
  Serious: Yes (Hospitalization)
  Sender: FDA-Public Use
  Company Number: JP_040804125

PATIENT
  Age: 61 Year
  Sex: Male
  Weight: 53 kg

DRUGS (2)
  1. GEMZAR [Suspect]
     Indication: PANCREATIC CARCINOMA
     Dosage: 1000 MG OTHER
     Dates: start: 20030407, end: 20030515
  2. UFT [Concomitant]

REACTIONS (5)
  - CONDITION AGGRAVATED [None]
  - MALIGNANT NEOPLASM PROGRESSION [None]
  - NAUSEA [None]
  - PANCREATIC CARCINOMA METASTATIC [None]
  - PLATELET COUNT DECREASED [None]
